FAERS Safety Report 5192242-5 (Version None)
Quarter: 2006Q4

REPORT INFORMATION
  Report Type: 
  Country: None (occurrence: None)
  Receive Date: 20061227
  Receipt Date: 20061219
  Transmission Date: 20070319
  Serious: Yes (Hospitalization)
  Sender: FDA-Public Use
  Company Number: US-ROCHE-476050

PATIENT
  Age: 78 Year
  Sex: Female
  Weight: 53.5 kg

DRUGS (8)
  1. BONIVA [Suspect]
     Indication: DRUG USE FOR UNKNOWN INDICATION
     Route: 048
     Dates: start: 20050615, end: 20060615
  2. NORVASC [Concomitant]
     Indication: HYPERTENSION
     Route: 048
  3. MICARDIS [Concomitant]
     Indication: HYPERTENSION
     Dosage: DRUG NAME REPORTED AS MYCARDIS
     Route: 048
  4. PRAVACHOL [Concomitant]
     Route: 048
  5. TOPROL-XL [Concomitant]
     Indication: HYPERTENSION
     Route: 048
  6. LEXAPRO [Concomitant]
     Indication: ANXIETY
  7. PROTONIX [Concomitant]
  8. ASPIRIN [Concomitant]
     Dosage: INDICATION REPORTED AS ^HEART^

REACTIONS (3)
  - ARTERIAL SPASM [None]
  - HYPOTENSION [None]
  - MYOCARDIAL INFARCTION [None]
